FAERS Safety Report 4511701-9 (Version None)
Quarter: 2004Q4

REPORT INFORMATION
  Report Type: 
  Country: None (occurrence: None)
  Receive Date: 20041129
  Receipt Date: 20041014
  Transmission Date: 20050328
  Serious: Yes (Other)
  Sender: FDA-Public Use
  Company Number: US-AMGEN-US090702

PATIENT
  Sex: Male

DRUGS (7)
  1. EPOGEN [Suspect]
     Indication: DIALYSIS
     Route: 058
     Dates: start: 20010501, end: 20040910
  2. BLOOD CELLS, PACKED HUMAN [Concomitant]
     Dates: start: 20040624, end: 20041116
  3. TRENTAL [Concomitant]
     Route: 048
     Dates: start: 20040831
  4. PEPCID [Concomitant]
     Route: 048
     Dates: start: 20040622
  5. NEPHRO-CAPS [Concomitant]
     Route: 048
     Dates: start: 20031023
  6. METOPROLOL [Concomitant]
     Route: 048
     Dates: start: 20031023
  7. RENAGEL [Concomitant]
     Route: 048
     Dates: start: 20031023

REACTIONS (8)
  - ANAEMIA [None]
  - ANTI-ERYTHROPOIETIN ANTIBODY POSITIVE [None]
  - BLOOD ERYTHROPOIETIN INCREASED [None]
  - BONE MARROW DEPRESSION [None]
  - DRUG HYPERSENSITIVITY [None]
  - EOSINOPHILIA [None]
  - MYELODYSPLASTIC SYNDROME [None]
  - THERAPEUTIC RESPONSE DECREASED [None]
